FAERS Safety Report 4831892-X (Version None)
Quarter: 2005Q4

REPORT INFORMATION
  Report Type: 
  Country: None (occurrence: None)
  Receive Date: 20051116
  Receipt Date: 20051103
  Transmission Date: 20060501
  Serious: Yes (Life-Threatening, Hospitalization)
  Sender: FDA-Public Use
  Company Number: 2005RR-01044

PATIENT
  Age: 47 Year
  Sex: Female
  Weight: 55 kg

DRUGS (9)
  1. IBUPROFEN [Suspect]
  2. OMEPRAZOLE [Concomitant]
  3. PARACETAMOL (PARACETAMOL) [Concomitant]
  4. FUROSEMIDE [Concomitant]
  5. DOMPERIDONE [Concomitant]
  6. CHLORMETHIAZOLE [Concomitant]
  7. BECLAZONE [Concomitant]
  8. VITAMIN D [Concomitant]
  9. FOLIC ACID [Concomitant]

REACTIONS (4)
  - DEHYDRATION [None]
  - DUODENAL ULCER PERFORATION [None]
  - FALL [None]
  - HYPOTHERMIA [None]
